FAERS Safety Report 4891097-3 (Version None)
Quarter: 2006Q1

REPORT INFORMATION
  Report Type: 
  Country: None (occurrence: None)
  Receive Date: 20060125
  Receipt Date: 20051020
  Transmission Date: 20060701
  Serious: Yes (Hospitalization, Other)
  Sender: FDA-Public Use
  Company Number: NL-MERCK-0510NLD00020

PATIENT
  Age: 55 Year
  Sex: Female

DRUGS (6)
  1. SINGULAIR [Suspect]
     Indication: CHRONIC OBSTRUCTIVE PULMONARY DISEASE
     Route: 048
     Dates: start: 20041020, end: 20050704
  2. SALMETEROL XINAFOATE AND FLUTICASONE PROPIONATE [Concomitant]
     Indication: ASTHMA
     Route: 055
     Dates: start: 20041020, end: 20050704
  3. FLUTICASONE PROPIONATE AND SALMETEROL XINAFOATE [Concomitant]
     Indication: ASTHMA
     Route: 055
     Dates: start: 20050201
  4. FLUTICASONE PROPIONATE AND SALMETEROL XINAFOATE [Concomitant]
     Route: 055
  5. CETIRIZINE HYDROCHLORIDE [Concomitant]
     Route: 048
     Dates: start: 19940101, end: 20050704
  6. FLUTICASONE PROPIONATE [Concomitant]
     Route: 055
     Dates: start: 20050227, end: 20050704

REACTIONS (4)
  - ALLERGIC GRANULOMATOUS ANGIITIS [None]
  - MALAISE [None]
  - PERONEAL NERVE PALSY [None]
  - PRURITUS [None]
